FAERS Safety Report 22154925 (Version 1)
Quarter: 2023Q1

REPORT INFORMATION
  Report Type: Spontaneous
  Country: FR (occurrence: FR)
  Receive Date: 20230330
  Receipt Date: 20230330
  Transmission Date: 20230418
  Serious: Yes (Hospitalization, Other)
  Sender: FDA-Public Use
  Company Number: FR-AstraZeneca-2022-39989

PATIENT
  Age: 963 Month
  Sex: Male

DRUGS (21)
  1. DOCETAXEL [Suspect]
     Active Substance: DOCETAXEL
     Indication: Gastric cancer
     Dosage: 50.0 MILLIGRAM/SQ. METER
     Route: 042
     Dates: start: 20220302, end: 20220302
  2. DOCETAXEL [Suspect]
     Active Substance: DOCETAXEL
     Indication: Oesophageal carcinoma
  3. OXALIPLATIN [Suspect]
     Active Substance: OXALIPLATIN
     Indication: Oesophageal carcinoma
     Dosage: 85 MILLIGRAM/SQ. METER
     Route: 042
     Dates: start: 20220302, end: 20220302
  4. OXALIPLATIN [Suspect]
     Active Substance: OXALIPLATIN
     Indication: Gastric cancer
  5. FLUOROURACIL [Suspect]
     Active Substance: FLUOROURACIL
     Indication: Oesophageal carcinoma
     Dosage: 2600.0 MG/M2  2600 MG/M2 ON DAYS 1 AND 15 2600 MG/M2 ON DAYS 1 AND 15 EVERY FOUR WEEKS
     Route: 042
     Dates: start: 20220302, end: 20220303
  6. FLUOROURACIL [Suspect]
     Active Substance: FLUOROURACIL
     Indication: Gastric cancer
  7. SODIUM BICARBONATE [Concomitant]
     Active Substance: SODIUM BICARBONATE
     Indication: Prophylaxis
     Dosage: 1.0 MOUTHWASH  THREE TIMES A DAY
     Dates: start: 20220302
  8. APREPITANT [Concomitant]
     Active Substance: APREPITANT
     Indication: Premedication
     Dosage: 80.0 MILLIGRAM, MG  EVERY D2 OR D3 OF EVERY CYCLE OF CHEMOTHERAPY
     Route: 048
     Dates: start: 20220303, end: 20220304
  9. APREPITANT [Concomitant]
     Active Substance: APREPITANT
     Dosage: 125.0 MILLIGRAM, EVERY D1 OF EVERY CYCLE OF CHEMOTHERAPY
     Route: 048
     Dates: start: 20220302, end: 20220302
  10. MONTMORILLONITE [Concomitant]
     Active Substance: MONTMORILLONITE
     Indication: Prophylaxis against diarrhoea
     Dosage: 3 GRAM
     Route: 048
     Dates: start: 20220302
  11. METOCLOPRAMIDE [Concomitant]
     Active Substance: METOCLOPRAMIDE
     Indication: Prophylaxis of nausea and vomiting
     Dosage: 10 MILLIGRAM
     Route: 048
     Dates: start: 20220302
  12. HERBALS\SAW PALMETTO [Concomitant]
     Active Substance: HERBALS\SAW PALMETTO
     Indication: Benign prostatic hyperplasia
     Dosage: 160 MILLIGRAM
     Route: 048
     Dates: start: 2019
  13. LEUCOVORIN [Concomitant]
     Active Substance: LEUCOVORIN
     Indication: Oesophageal carcinoma
     Dosage: 200.0 MG/M2  200 MG/M2 ON DAYS 1 AND 15 200 MG/M2 ON DAYS 1 AND 15 EVERY FOUR WEEKS
     Route: 042
     Dates: start: 20220302
  14. LEUCOVORIN [Concomitant]
     Active Substance: LEUCOVORIN
     Indication: Gastric cancer
  15. APIXABAN [Concomitant]
     Active Substance: APIXABAN
     Indication: Atrial fibrillation
     Dosage: 5 MILLIGRAM
     Route: 048
     Dates: start: 2019
  16. CARBOHYDRATES\FATTY ACIDS\MINERALS\PROTEIN\VITAMINS [Concomitant]
     Active Substance: CARBOHYDRATES\FATTY ACIDS\MINERALS\PROTEIN\VITAMINS
     Indication: Dysphagia
     Dosage: 1 LITER, ONCE A DAY
     Route: 048
     Dates: start: 202202
  17. ENOXAPARIN [Concomitant]
     Active Substance: ENOXAPARIN
     Indication: Thrombosis prophylaxis
     Dosage: 8000 INTERNATIONAL UNIT
     Route: 065
     Dates: start: 20220329
  18. RACECADOTRIL [Concomitant]
     Active Substance: RACECADOTRIL
     Indication: Prophylaxis against diarrhoea
     Dosage: 100 MILLIGRAM
     Route: 048
     Dates: start: 20220302
  19. PEGFILGRASTIM [Concomitant]
     Active Substance: PEGFILGRASTIM
     Indication: Prophylaxis
     Dosage: 6.0 MILLIGRAM, EVERY D2 OF EACH CYCLE OF CHEMOTHERAPY
     Route: 058
     Dates: start: 20220305
  20. LANSOPRAZOLE [Concomitant]
     Active Substance: LANSOPRAZOLE
     Indication: Prophylaxis
     Dosage: 30
     Route: 065
     Dates: start: 20220329, end: 20220504
  21. PREDNISOLONE [Concomitant]
     Active Substance: PREDNISOLONE
     Indication: Autoimmune hepatitis
     Dosage: 40.0 MILLIGRAM PER CUBIC METRE
     Route: 048
     Dates: start: 20220301, end: 20220303

REACTIONS (1)
  - Autoimmune hepatitis [Not Recovered/Not Resolved]

NARRATIVE: CASE EVENT DATE: 20220314
